FAERS Safety Report 5082567-6 (Version None)
Quarter: 2006Q3

REPORT INFORMATION
  Report Type: 
  Country: None (occurrence: None)
  Receive Date: 20060817
  Receipt Date: 20060807
  Transmission Date: 20061208
  Serious: Yes (Hospitalization)
  Sender: FDA-Public Use
  Company Number: FR-BRISTOL-MYERS SQUIBB COMPANY-13469754

PATIENT
  Age: 99 Year
  Sex: Female

DRUGS (10)
  1. COUMADIN [Suspect]
     Indication: ATRIAL FIBRILLATION
     Route: 048
     Dates: end: 20060509
  2. COUMADIN [Interacting]
     Indication: ATRIAL FLUTTER
     Route: 048
     Dates: end: 20060509
  3. TRIFLUCAN [Interacting]
     Route: 048
     Dates: start: 20060414
  4. DIGOXIN [Concomitant]
  5. PANTOPRAZOLE SODIUM [Concomitant]
  6. PROZAC [Concomitant]
  7. TEMESTA [Concomitant]
  8. DUPHALAC [Concomitant]
  9. CALPEROS [Concomitant]
  10. DIANTALVIC [Concomitant]

REACTIONS (4)
  - ANAEMIA [None]
  - COAGULATION TIME PROLONGED [None]
  - DRUG INTERACTION [None]
  - RECTAL ADENOMA [None]
